FAERS Safety Report 19642382 (Version 3)
Quarter: 2021Q3

REPORT INFORMATION
  Report Type: Report from Study
  Country: JP (occurrence: JP)
  Receive Date: 20210730
  Receipt Date: 20210825
  Transmission Date: 20211014
  Serious: Yes (Hospitalization)
  Sender: FDA-Public Use
  Company Number: JP-BRISTOL-MYERS SQUIBB COMPANY-BMS-2021-074109

PATIENT
  Age: 50 Year
  Sex: Male
  Weight: 53.8 kg

DRUGS (12)
  1. DERMOVATE [Concomitant]
     Active Substance: CLOBETASOL
     Indication: PHLEBITIS
     Dosage: APPROPRIATE AMOUNT, Q12H
     Route: 061
     Dates: start: 20210719
  2. NIVOLUMAB [Suspect]
     Active Substance: NIVOLUMAB
     Indication: OESOPHAGEAL CARCINOMA
     Dosage: 240 MILLIGRAM
     Route: 041
     Dates: start: 20210615
  3. CISPLATIN. [Suspect]
     Active Substance: CISPLATIN
     Indication: OESOPHAGEAL CARCINOMA
     Dosage: 75 MG/M2/DAY
     Route: 065
     Dates: start: 20210615
  4. HEPARINOID [Concomitant]
     Active Substance: CHONDROITIN SULFATE (BOVINE)
     Indication: RADIATION SKIN INJURY
  5. ALLOPURINOL. [Concomitant]
     Active Substance: ALLOPURINOL
     Indication: PROPHYLAXIS
     Dosage: 100 MILLIGRAM, PRN
     Route: 002
     Dates: start: 20210615
  6. MAGMITT [Concomitant]
     Active Substance: MAGNESIUM OXIDE
     Indication: CONSTIPATION
     Dosage: 330?660MG ONCE, 1?3 TIMES A DAY
     Route: 048
     Dates: start: 20210617
  7. DEXTROMETHORPHAN HYDROBROMIDE. [Concomitant]
     Active Substance: DEXTROMETHORPHAN HYDROBROMIDE
     Indication: COUGH
     Dosage: 15 MILLIGRAM, Q8H
     Route: 048
     Dates: start: 20210714, end: 20210727
  8. HEPARINOID [Concomitant]
     Active Substance: CHONDROITIN SULFATE (BOVINE)
     Indication: SKIN DISORDER PROPHYLAXIS
     Dosage: APPROPRIATE AMOUNT, Q12H
     Route: 061
     Dates: start: 20210614
  9. NOVAMIN [Concomitant]
     Dosage: 5 MG, PRN
     Route: 048
     Dates: start: 20210717, end: 20210727
  10. 5?FLUOROURACIL [Suspect]
     Active Substance: FLUOROURACIL
     Indication: OESOPHAGEAL CARCINOMA
     Dosage: 1000 MG/M2/DAY, DAY1?DAY4
     Route: 065
     Dates: start: 20210615
  11. AZUNOL [SODIUM GUALENATE] [Concomitant]
     Active Substance: SODIUM GUALENATE
     Indication: PROPHYLAXIS
     Dosage: APPROPRIATE AMOUNT, Q6H
     Route: 002
     Dates: start: 20210615
  12. NOVAMIN [Concomitant]
     Indication: NAUSEA
     Dosage: 5 MILLIGRAM, Q8H
     Route: 048
     Dates: start: 20210716

REACTIONS (1)
  - Oesophagitis [Recovering/Resolving]

NARRATIVE: CASE EVENT DATE: 20210721
